FAERS Safety Report 6958952-1 (Version None)
Quarter: 2010Q3

REPORT INFORMATION
  Report Type: 
  Country: None (occurrence: None)
  Receive Date: 20100831
  Receipt Date: 20100826
  Transmission Date: 20110219
  Serious: Yes (Life-Threatening)
  Sender: FDA-Public Use
  Company Number: JP-EISAI INC.-E2090-01281-SPO-JP

PATIENT
  Sex: Male

DRUGS (5)
  1. EXCEGRAN [Suspect]
     Indication: EPILEPSY
     Route: 048
     Dates: start: 20051222, end: 20060301
  2. EXCEGRAN [Suspect]
     Route: 048
     Dates: start: 20060302
  3. EXCEGRAN [Suspect]
     Route: 048
     Dates: start: 20080101
  4. VALPROIC ACID [Concomitant]
  5. TEGRETOL [Concomitant]

REACTIONS (3)
  - ILEUS PARALYTIC [None]
  - PYELONEPHRITIS ACUTE [None]
  - SEPSIS [None]
